FAERS Safety Report 11275589 (Version 1)
Quarter: 2015Q3

REPORT INFORMATION
  Report Type: Spontaneous
  Country: US (occurrence: US)
  Receive Date: 20150716
  Receipt Date: 20150716
  Transmission Date: 20151125
  Serious: Yes (Hospitalization)
  Sender: FDA-Public Use
  Company Number: US-DRREDDYS-USA/USA/15/0048643

PATIENT
  Sex: Male

DRUGS (1)
  1. DIVALPROEX SODIUM EXTENDED RELEASE TABLETS 500 MG [Suspect]
     Active Substance: DIVALPROEX SODIUM
     Indication: COMPLEX PARTIAL SEIZURES
     Route: 065
     Dates: start: 20140514

REACTIONS (7)
  - Seizure [Unknown]
  - Abnormal behaviour [Unknown]
  - Fall [Unknown]
  - Anger [Unknown]
  - Product quality issue [Unknown]
  - Elevated mood [Unknown]
  - Tooth fracture [Unknown]
